FAERS Safety Report 4536908-6 (Version None)
Quarter: 2004Q4

REPORT INFORMATION
  Report Type: 
  Country: None (occurrence: None)
  Receive Date: 20041223
  Receipt Date: 20041222
  Transmission Date: 20050328
  Serious: Yes (Hospitalization)
  Sender: FDA-Public Use
  Company Number: FR-GLAXOSMITHKLINE-B0362603A

PATIENT
  Age: 66 Year
  Sex: Female

DRUGS (5)
  1. TRACRIUM [Suspect]
     Indication: INDUCTION OF ANAESTHESIA
     Route: 042
     Dates: start: 20040206, end: 20040206
  2. DIPRIVAN [Suspect]
     Indication: INDUCTION OF ANAESTHESIA
     Route: 042
     Dates: start: 20040206, end: 20040206
  3. SUFENTA [Suspect]
     Indication: INDUCTION OF ANAESTHESIA
     Route: 042
     Dates: start: 20040206, end: 20040206
  4. AUGMENTIN '125' [Suspect]
     Indication: ANTIBACTERIAL PROPHYLAXIS
     Route: 048
     Dates: end: 20040206
  5. ZINNAT [Suspect]
     Indication: ANTIBACTERIAL PROPHYLAXIS
     Route: 048
     Dates: end: 20040206

REACTIONS (2)
  - SUPRAVENTRICULAR EXTRASYSTOLES [None]
  - VENTRICULAR TACHYCARDIA [None]
